FAERS Safety Report 5282054-6 (Version None)
Quarter: 2007Q1

REPORT INFORMATION
  Report Type: 
  Country: None (occurrence: None)
  Receive Date: 20070330
  Receipt Date: 20070320
  Transmission Date: 20070707
  Serious: Yes (Hospitalization)
  Sender: FDA-Public Use
  Company Number: FR-PFIZER INC-2007023433

PATIENT
  Age: 30 Year
  Sex: Female

DRUGS (2)
  1. CYTOTEC [Suspect]
     Indication: ABORTION
     Route: 060
  2. MIFEGYNE [Concomitant]

REACTIONS (5)
  - LIP SWELLING [None]
  - MUSCULOSKELETAL CHEST PAIN [None]
  - PARAESTHESIA [None]
  - RASH MACULAR [None]
  - WEIGHT INCREASED [None]
